FAERS Safety Report 13268878 (Version 2)
Quarter: 2017Q1

REPORT INFORMATION
  Report Type: Spontaneous
  Country: FR (occurrence: FR)
  Receive Date: 20170224
  Receipt Date: 20170308
  Transmission Date: 20170428
  Serious: Yes (Hospitalization)
  Sender: FDA-Public Use
  Company Number: PHHY2017FR028422

PATIENT
  Age: 69 Year
  Sex: Female

DRUGS (5)
  1. VINDESINE [Suspect]
     Active Substance: VINDESINE
     Indication: ACUTE LYMPHOCYTIC LEUKAEMIA
     Dosage: 4 MG, QD
     Route: 042
     Dates: start: 20161221, end: 20161221
  2. MEDROL [Suspect]
     Active Substance: METHYLPREDNISOLONE
     Indication: ACUTE LYMPHOCYTIC LEUKAEMIA
     Dosage: 200 MG, QD
     Route: 042
     Dates: start: 20161130, end: 20161221
  3. VINCRISTINE [Suspect]
     Active Substance: VINCRISTINE
     Indication: ACUTE LYMPHOCYTIC LEUKAEMIA
     Dosage: 1 MG, QD
     Route: 042
     Dates: start: 20161130, end: 20161214
  4. TASIGNA [Suspect]
     Active Substance: NILOTINIB
     Dosage: 200 MG, BID
     Route: 048
     Dates: start: 20170124, end: 20170125
  5. TASIGNA [Suspect]
     Active Substance: NILOTINIB
     Indication: ACUTE LYMPHOCYTIC LEUKAEMIA
     Dosage: 400 MG, BID
     Route: 048
     Dates: start: 20161130, end: 20170123

REACTIONS (2)
  - Pericardial effusion [Recovered/Resolved]
  - Pleural effusion [Recovered/Resolved]

NARRATIVE: CASE EVENT DATE: 20170110
